FAERS Safety Report 17406416 (Version 1)
Quarter: 2020Q1

REPORT INFORMATION
  Report Type: Spontaneous
  Country: US (occurrence: US)
  Receive Date: 20200211
  Receipt Date: 20200211
  Transmission Date: 20200409
  Serious: Yes (Other)
  Sender: FDA-Public Use
  Company Number: None

PATIENT
  Age: 40 Year
  Sex: Female

DRUGS (3)
  1. SYNTHROID [Concomitant]
     Active Substance: LEVOTHYROXINE SODIUM
  2. OSELTAMIVIR 75MG CAPSULE [Suspect]
     Active Substance: OSELTAMIVIR
     Indication: INFLUENZA
     Dates: start: 20200206, end: 20200210
  3. PRENATAL VITAMINS [Concomitant]
     Active Substance: VITAMINS

REACTIONS (8)
  - Confusional state [None]
  - Memory impairment [None]
  - Disturbance in attention [None]
  - Feeling abnormal [None]
  - Insomnia [None]
  - Panic attack [None]
  - Aphasia [None]
  - Anxiety [None]

NARRATIVE: CASE EVENT DATE: 20200210
